FAERS Safety Report 6906424-2 (Version None)
Quarter: 2010Q3

REPORT INFORMATION
  Report Type: 
  Country: None (occurrence: None)
  Receive Date: 20100804
  Receipt Date: 20100727
  Transmission Date: 20110219
  Serious: Yes (Other)
  Sender: FDA-Public Use
  Company Number: B0659959A

PATIENT
  Sex: Female

DRUGS (2)
  1. LAPATINIB [Suspect]
     Dosage: 1250MG PER DAY
     Route: 065
  2. CAPECITABINE [Suspect]
     Dosage: 2000MGM2 CYCLIC
     Route: 065

REACTIONS (3)
  - CARDIAC FAILURE CONGESTIVE [None]
  - CHEST PAIN [None]
  - EJECTION FRACTION DECREASED [None]
